FAERS Safety Report 5941117-X (Version None)
Quarter: 2008Q4

REPORT INFORMATION
  Report Type: 
  Country: None (occurrence: None)
  Receive Date: 20081104
  Receipt Date: 20081022
  Transmission Date: 20090506
  Serious: Yes (Other)
  Sender: FDA-Public Use
  Company Number: JP-GENENTECH-270754

PATIENT
  Sex: Male
  Weight: 60 kg

DRUGS (4)
  1. AVASTIN [Suspect]
     Indication: COLON CANCER
     Dosage: 5 MG/KG, Q2W
     Route: 041
  2. ELPLAT [Concomitant]
     Indication: DRUG USE FOR UNKNOWN INDICATION
     Dosage: UNK
  3. FLUOROURACIL [Concomitant]
     Indication: DRUG USE FOR UNKNOWN INDICATION
     Dosage: UNK
  4. LEVOLEUCOVORIN CALCIUM [Concomitant]
     Indication: DRUG USE FOR UNKNOWN INDICATION
     Dosage: UNK

REACTIONS (1)
  - INTERSTITIAL LUNG DISEASE [None]
